FAERS Safety Report 6937574-2 (Version None)
Quarter: 2010Q3

REPORT INFORMATION
  Report Type: 
  Country: None (occurrence: None)
  Receive Date: 20100823
  Receipt Date: 20100810
  Transmission Date: 20110219
  Serious: Yes (Hospitalization, Other)
  Sender: FDA-Public Use
  Company Number: US-ELI_LILLY_AND_COMPANY-US201007004107

PATIENT
  Sex: Female

DRUGS (17)
  1. FORTEO [Suspect]
     Indication: OSTEOPOROSIS
     Dosage: 20 UG, DAILY (1/D)
  2. LANTUS [Concomitant]
     Dosage: 40 U, UNK
  3. HUMALIN [Concomitant]
     Dosage: 8 U, UNK
  4. METOPROLOL [Concomitant]
     Dosage: 50 MG, EACH EVENING
  5. METOPROLOL [Concomitant]
     Dosage: 50 MG, EACH MORNING
  6. LISINOPRIL [Concomitant]
     Dosage: 40 MG, EACH EVENING
  7. LOVASTATIN [Concomitant]
     Dosage: 40 MG, EACH EVENING
  8. ISOSORBIDE [Concomitant]
     Dosage: 30 MG, 2/D
  9. CITALOPRAM HYDROBROMIDE [Concomitant]
     Dosage: 20 MG, EACH MORNING
  10. MIRTAZAPINE [Concomitant]
     Dosage: 7.5 MG, EACH MORNING
  11. CLONAZEPAM [Concomitant]
     Dosage: 1 MG, EACH EVENING
  12. NIASPAN [Concomitant]
     Dosage: 500 MG, EACH EVENING
  13. MULTIVITAMIN [Concomitant]
     Dosage: 2 D/F, 2/D
  14. PLAVIX [Concomitant]
     Dosage: 75 MG, UNK
  15. ASPIRIN [Concomitant]
     Dosage: 81 MG, UNK
  16. BUMETANIDE [Concomitant]
     Dosage: 2 MG, 2/D
  17. TEMAZEPAM [Concomitant]
     Dosage: 15 MG, EACH EVENING

REACTIONS (10)
  - CARDIAC FAILURE CONGESTIVE [None]
  - CHEST DISCOMFORT [None]
  - CORONARY ARTERY OCCLUSION [None]
  - DIARRHOEA [None]
  - DYSPEPSIA [None]
  - DYSPNOEA [None]
  - NONSPECIFIC REACTION [None]
  - OEDEMA PERIPHERAL [None]
  - RENAL DISORDER [None]
  - STENT PLACEMENT [None]
